FAERS Safety Report 12604905 (Version 1)
Quarter: 2016Q3

REPORT INFORMATION
  Report Type: Spontaneous
  Country: IL (occurrence: IL)
  Receive Date: 20160728
  Receipt Date: 20160728
  Transmission Date: 20161109
  Serious: Yes (Hospitalization)
  Sender: FDA-Public Use
  Company Number: IL-ASTRAZENECA-2016SE79666

PATIENT
  Age: 71 Year
  Sex: Male

DRUGS (1)
  1. FOXIGA [Suspect]
     Active Substance: DAPAGLIFLOZIN
     Indication: DIABETES MELLITUS
     Route: 048

REACTIONS (2)
  - Pyrexia [Recovering/Resolving]
  - Renal failure [Unknown]
